FAERS Safety Report 4500300-0 (Version None)
Quarter: 2004Q4

REPORT INFORMATION
  Report Type: 
  Country: None (occurrence: None)
  Receive Date: 20041109
  Receipt Date: 20041104
  Transmission Date: 20050328
  Serious: Yes (Other)
  Sender: FDA-Public Use
  Company Number: 140568USA

PATIENT
  Age: 22 Year
  Sex: Female
  Weight: 43.0917 kg

DRUGS (2)
  1. COPAXONE [Suspect]
     Indication: MULTIPLE SCLEROSIS
     Dates: start: 20040628, end: 20040817
  2. ADVIL [Suspect]

REACTIONS (9)
  - ARTHRALGIA [None]
  - CHILLS [None]
  - DRUG SCREEN POSITIVE [None]
  - HEPATITIS [None]
  - MASS [None]
  - PAIN [None]
  - PRURITUS GENERALISED [None]
  - RASH [None]
  - URINE CANNABINOIDS INCREASED [None]
